FAERS Safety Report 7038658-3 (Version None)
Quarter: 2010Q4

REPORT INFORMATION
  Report Type: 
  Country: None (occurrence: None)
  Receive Date: 20101011
  Receipt Date: 20101007
  Transmission Date: 20110411
  Serious: No
  Sender: FDA-Public Use
  Company Number: US-PFIZER INC-2010127846

PATIENT
  Sex: Female
  Weight: 65.76 kg

DRUGS (3)
  1. ARTHROTEC [Suspect]
     Indication: ARTHRALGIA
     Dosage: 50 MG, 2X/DAY
     Route: 048
     Dates: start: 20100701
  2. ARTHROTEC [Suspect]
     Indication: JOINT SWELLING
  3. ARTHROTEC [Suspect]
     Indication: ARTHRITIS

REACTIONS (1)
  - ABDOMINAL PAIN UPPER [None]
